FAERS Safety Report 9991938 (Version 1)
Quarter: 2014Q1

REPORT INFORMATION
  Report Type: Spontaneous
  Country: US (occurrence: US)
  Receive Date: 20140310
  Receipt Date: 20140310
  Transmission Date: 20141002
  Serious: No
  Sender: FDA-Public Use
  Company Number: US-VIIV HEALTHCARE LIMITED-A1060036A

PATIENT
  Age: 58 Year
  Sex: Male

DRUGS (16)
  1. TIVICAY [Suspect]
     Indication: HIV INFECTION
     Dosage: 50MG PER DAY
     Route: 048
     Dates: start: 201309, end: 201401
  2. NORVIR [Concomitant]
  3. PREZISTA [Concomitant]
  4. LOVAZA [Concomitant]
  5. CLOPIDOGREL [Concomitant]
  6. ASPIRIN [Concomitant]
  7. TAMSULOSIN [Concomitant]
  8. ZETIA [Concomitant]
  9. ACYCLOVIR [Concomitant]
  10. DESLORATADINE [Concomitant]
  11. VITAMIN D3 [Concomitant]
  12. LANSOPRAZOLE [Concomitant]
  13. CRESTOR [Concomitant]
  14. NIASPAN [Concomitant]
  15. LISINOPRIL [Concomitant]
  16. AMITRIPTYLINE [Concomitant]

REACTIONS (1)
  - Rash [Unknown]
